FAERS Safety Report 8157761-8 (Version None)
Quarter: 2012Q1

REPORT INFORMATION
  Report Type: 
  Country: None (occurrence: None)
  Receive Date: 20120222
  Receipt Date: 20120213
  Transmission Date: 20120608
  Serious: Yes (Other)
  Sender: FDA-Public Use
  Company Number: CO-ASTRAZENECA-2012SE06228

PATIENT
  Age: 50 Year
  Sex: Male

DRUGS (1)
  1. ATACAND [Suspect]
     Route: 048
     Dates: start: 20111201, end: 20120101

REACTIONS (2)
  - CHOLESTASIS [None]
  - WRONG TECHNIQUE IN DRUG USAGE PROCESS [None]
